FAERS Safety Report 20916872 (Version 1)
Quarter: 2022Q2

REPORT INFORMATION
  Report Type: Spontaneous
  Country: CH (occurrence: CH)
  Receive Date: 20220605
  Receipt Date: 20220605
  Transmission Date: 20220720
  Serious: Yes (Hospitalization, Other)
  Sender: FDA-Public Use
  Company Number: None

PATIENT
  Age: 15 Year
  Sex: Female

DRUGS (19)
  1. IFOSFAMIDE [Suspect]
     Active Substance: IFOSFAMIDE
     Indication: Osteosarcoma
     Dosage: 1 DOSAGE FORM: 3G/M2, ROUTE: IV NOS
     Route: 050
     Dates: start: 20220101, end: 20220105
  2. IFOSFAMIDE [Suspect]
     Active Substance: IFOSFAMIDE
     Dosage: ANOTHER CYCLE STARTED ON FEBRUARY 7TH, 2022, ROUTE: IV NOS
     Route: 050
     Dates: start: 20220207
  3. MESNA [Suspect]
     Active Substance: MESNA
     Indication: Chemotherapy side effect prophylaxis
     Dosage: 400 MG, QD, ROUTE: IV NOS
     Route: 050
     Dates: start: 20220101, end: 20220105
  4. MIFAMURTIDE [Suspect]
     Active Substance: MIFAMURTIDE
     Indication: Osteosarcoma
     Dosage: 1 {DF}, 2X A WEEK, ADDITIONAL INFO: ROUTE:042 ; ROUTE:042MEPACT, ROUTE: IV NOS
     Route: 050
     Dates: start: 20211229, end: 20220106
  5. MIFAMURTIDE [Suspect]
     Active Substance: MIFAMURTIDE
     Dosage: ANOTHER CYCLE STARTED ON FEBRUARY 4TH, 2022, ROUTE: IV NOS
     Route: 050
     Dates: start: 20220204
  6. EMEND [Suspect]
     Active Substance: APREPITANT
     Indication: Antiemetic supportive care
     Dosage: 80 MG, QD
     Route: 048
     Dates: start: 20220102, end: 20220106
  7. PREGABALIN [Concomitant]
     Active Substance: PREGABALIN
     Dosage: 100 MG, BID
     Route: 048
  8. MAGNESIUM ASPARTATE HYDROCHLORIDE [Concomitant]
     Active Substance: MAGNESIUM ASPARTATE HYDROCHLORIDE
     Dosage: 20 MMOL, BID
     Route: 048
  9. BACTRIM [Concomitant]
     Active Substance: SULFAMETHOXAZOLE\TRIMETHOPRIM
     Dosage: TIME INTERVAL:
     Route: 048
  10. ENOXAPARIN SODIUM [Concomitant]
     Active Substance: ENOXAPARIN SODIUM
     Dosage: 40 MG, QD
     Route: 058
  11. VITAMIN D [Concomitant]
     Active Substance: VITAMIN D NOS
     Dosage: 1 {DF}, QD
     Route: 048
  12. MELATONIN [Concomitant]
     Active Substance: MELATONIN
     Dosage: 2 MG, QD
     Route: 048
     Dates: start: 20220106
  13. ALOXI [Concomitant]
     Active Substance: PALONOSETRON HYDROCHLORIDE
     Dosage: IN TOTAL, ROUTE: IV NOS
     Route: 050
     Dates: start: 20220101, end: 20220101
  14. CLEMASTINE FUMARATE [Concomitant]
     Active Substance: CLEMASTINE FUMARATE
     Dosage: 1 MG, BID
     Route: 048
     Dates: start: 20220102, end: 20220104
  15. ACETAMINOPHEN [Concomitant]
     Active Substance: ACETAMINOPHEN
     Dosage: IN TOTAL
     Route: 048
     Dates: start: 20220106, end: 20220106
  16. ACETAMINOPHEN [Concomitant]
     Active Substance: ACETAMINOPHEN
     Dosage: IN TOTAL
     Route: 048
     Dates: start: 20211228, end: 20211228
  17. IBUPROFEN [Concomitant]
     Active Substance: IBUPROFEN
     Dosage: IN TOTAL
     Route: 048
     Dates: start: 20211228, end: 20211228
  18. IBUPROFEN [Concomitant]
     Active Substance: IBUPROFEN
     Dosage: IN TOTAL
     Route: 048
     Dates: start: 20220106, end: 20220106
  19. PRIMPERAN [Concomitant]
     Active Substance: METOCLOPRAMIDE HYDROCHLORIDE
     Dosage: AS NECESSARY
     Route: 048
     Dates: start: 20220104, end: 20220104

REACTIONS (2)
  - Encephalopathy [Recovered/Resolved]
  - Drug interaction [Recovered/Resolved]

NARRATIVE: CASE EVENT DATE: 20220102
